FAERS Safety Report 8871914 (Version 2)
Quarter: 2013Q2

REPORT INFORMATION
  Report Type: Spontaneous
  Country: FR (occurrence: FR)
  Receive Date: 20121023
  Receipt Date: 20130419
  Transmission Date: 20140414
  Serious: Yes (Other)
  Sender: FDA-Public Use
  Company Number: PHHY2012FR093388

PATIENT
  Age: 50 Year
  Sex: Female

DRUGS (4)
  1. ORLISTAT [Suspect]
     Indication: WEIGHT DECREASED
  2. ORLISTAT [Interacting]
     Indication: OFF LABEL USE
  3. VALPROIC ACID [Interacting]
     Indication: PARTIAL SEIZURES
  4. LACOSAMIDE [Interacting]
     Indication: PARTIAL SEIZURES

REACTIONS (3)
  - Convulsion [Recovered/Resolved]
  - Drug interaction [Unknown]
  - Malnutrition [Recovered/Resolved]
